FAERS Safety Report 15651079 (Version 2)
Quarter: 2018Q4

REPORT INFORMATION
  Report Type: Spontaneous
  Country: GB (occurrence: GB)
  Receive Date: 20181123
  Receipt Date: 20181206
  Transmission Date: 20190205
  Serious: Yes (Other)
  Sender: FDA-Public Use
  Company Number: GB-AUROBINDO-AUR-APL-2018-056500

PATIENT
  Sex: Male

DRUGS (3)
  1. RIBAVIRIN TABLET [Suspect]
     Active Substance: RIBAVIRIN
     Indication: CHRONIC HEPATITIS C
     Dosage: UNK, TOTAL OF 24 WEEKS
     Route: 065
  2. SOFOSBUVIR [Suspect]
     Active Substance: SOFOSBUVIR
     Indication: CHRONIC HEPATITIS C
     Dosage: UNK, TOTAL OF 24 WEEKS
     Route: 065
  3. DACLATASVIR. [Suspect]
     Active Substance: DACLATASVIR
     Indication: CHRONIC HEPATITIS C
     Dosage: UNK, TOTAL OF 24 WEEKS
     Route: 065

REACTIONS (3)
  - Hepatocellular carcinoma [Unknown]
  - Genotype drug resistance test positive [Unknown]
  - Treatment failure [Not Recovered/Not Resolved]

NARRATIVE: CASE EVENT DATE: 2017
